FAERS Safety Report 5058043-3 (Version None)
Quarter: 2006Q3

REPORT INFORMATION
  Report Type: 
  Country: None (occurrence: None)
  Receive Date: 20060721
  Receipt Date: 20060525
  Transmission Date: 20061208
  Serious: No
  Sender: FDA-Public Use
  Company Number: US-GLAXOSMITHKLINE-A0606946A

PATIENT
  Age: 69 Year
  Sex: Male

DRUGS (3)
  1. AVANDIA [Suspect]
     Dosage: 8MG PER DAY
     Route: 048
     Dates: end: 20060516
  2. GLIPIZIDE [Concomitant]
  3. GABAPENTIN [Concomitant]

REACTIONS (1)
  - BLOOD GLUCOSE DECREASED [None]
